FAERS Safety Report 4902752-0 (Version None)
Quarter: 2006Q1

REPORT INFORMATION
  Report Type: 
  Country: None (occurrence: None)
  Receive Date: 20060207
  Receipt Date: 20060130
  Transmission Date: 20060701
  Serious: Yes (Hospitalization)
  Sender: FDA-Public Use
  Company Number: US-AMGEN-US160767

PATIENT
  Sex: Female
  Weight: 49 kg

DRUGS (14)
  1. ARANESP [Suspect]
     Indication: RENAL FAILURE CHRONIC
     Route: 058
     Dates: start: 20030515
  2. CATAPRES [Concomitant]
     Route: 065
  3. COREG [Concomitant]
     Route: 065
  4. NORVASC [Concomitant]
     Route: 065
  5. IRON [Concomitant]
     Route: 042
     Dates: start: 20050831, end: 20050901
  6. AVANDIA [Concomitant]
     Dates: start: 20040722
  7. FAMOTIDINE [Concomitant]
  8. LASIX [Concomitant]
  9. GLIPIZIDE [Concomitant]
     Dates: start: 20040203
  10. IMDUR [Concomitant]
     Dates: start: 20051111
  11. POTASSIUM CHLORIDE [Concomitant]
     Dates: start: 20030820
  12. NEPHRO-CAPS [Concomitant]
  13. TUMS [Concomitant]
     Dates: start: 20050315
  14. ASCORBIC ACID [Concomitant]
     Dates: start: 20031211

REACTIONS (8)
  - AMMONIA INCREASED [None]
  - ANAEMIA [None]
  - BLOOD GLUCOSE INCREASED [None]
  - DRUG DOSE OMISSION [None]
  - ELECTROENCEPHALOGRAM ABNORMAL [None]
  - IRON DEFICIENCY [None]
  - MENTAL STATUS CHANGES [None]
  - PULMONARY CONGESTION [None]
